FAERS Safety Report 6812316-X (Version None)
Quarter: 2010Q3

REPORT INFORMATION
  Report Type: 
  Country: None (occurrence: None)
  Receive Date: 20100701
  Receipt Date: 20100519
  Transmission Date: 20110219
  Serious: Yes (Death, Hospitalization, Other)
  Sender: FDA-Public Use
  Company Number: US-BAXTER-2009BH013037

PATIENT
  Age: 78 Year
  Sex: Female

DRUGS (8)
  1. HEPARIN SODIUM [Suspect]
     Indication: HAEMODIALYSIS
     Route: 065
     Dates: start: 20070801, end: 20080116
  2. HEPARIN SODIUM [Suspect]
     Route: 010
     Dates: start: 20080116, end: 20080116
  3. HEPARIN SODIUM [Suspect]
     Route: 010
     Dates: start: 20080116, end: 20080116
  4. HEPARIN SODIUM 5,000 UNITS IN DEXTROSE 5% [Suspect]
     Indication: PRODUCT USED FOR UNKNOWN INDICATION
     Route: 042
     Dates: start: 20070801, end: 20080101
  5. HEPARIN SODIUM 5,000 UNITS IN DEXTROSE 5% [Suspect]
     Route: 010
     Dates: start: 20080116, end: 20080116
  6. HEPARIN SODIUM 5,000 UNITS IN DEXTROSE 5% [Suspect]
     Route: 010
     Dates: start: 20080116, end: 20080116
  7. EPOGEN [Concomitant]
     Indication: PRODUCT USED FOR UNKNOWN INDICATION
     Route: 042
  8. VANCOMYCIN [Concomitant]
     Indication: PRODUCT USED FOR UNKNOWN INDICATION
     Route: 065

REACTIONS (5)
  - AGITATION [None]
  - ASTHENIA [None]
  - DEATH [None]
  - HYPOTENSION [None]
  - UNRESPONSIVE TO STIMULI [None]
